FAERS Safety Report 10345736 (Version 1)
Quarter: 2014Q3

REPORT INFORMATION
  Report Type: Spontaneous
  Country: US (occurrence: US)
  Receive Date: 20140728
  Receipt Date: 20140728
  Transmission Date: 20150326
  Serious: No
  Sender: FDA-Public Use
  Company Number: US-GILEAD-2014-0109793

PATIENT
  Sex: Female

DRUGS (8)
  1. BABY ASPIRIN [Concomitant]
     Active Substance: ASPIRIN
  2. NORCO [Concomitant]
     Active Substance: ACETAMINOPHEN\HYDROCODONE BITARTRATE
     Indication: PAIN
  3. ATENOLOL. [Concomitant]
     Active Substance: ATENOLOL
  4. SOVALDI [Suspect]
     Active Substance: SOFOSBUVIR
     Indication: PRODUCT USED FOR UNKNOWN INDICATION
     Route: 065
  5. OLYSIO [Suspect]
     Active Substance: SIMEPREVIR
     Indication: PRODUCT USED FOR UNKNOWN INDICATION
     Dosage: UNK
     Route: 065
     Dates: start: 2014
  6. TAMADOL [Concomitant]
     Indication: PAIN
  7. B12                                /00056201/ [Concomitant]
  8. AN ^AQUA^ PILL [Concomitant]

REACTIONS (2)
  - Adverse reaction [Unknown]
  - Off label use [Unknown]

NARRATIVE: CASE EVENT DATE: 2014
